FAERS Safety Report 11117296 (Version 2)
Quarter: 2015Q2

REPORT INFORMATION
  Report Type: Spontaneous
  Country: AU (occurrence: AU)
  Receive Date: 20150515
  Receipt Date: 20150626
  Transmission Date: 20150821
  Serious: Yes (Hospitalization, Other)
  Sender: FDA-Public Use
  Company Number: PHHY2015AU058774

PATIENT
  Age: 50 Year
  Sex: Male
  Weight: 90 kg

DRUGS (5)
  1. PERINDOPRIL/INDAPAMIDE [Concomitant]
     Active Substance: INDAPAMIDE\PERINDOPRIL
     Indication: HYPERTENSION
     Dosage: 1 DF, QD
     Route: 048
     Dates: start: 200801
  2. GLUCOVANCE [Concomitant]
     Active Substance: GLYBURIDE\METFORMIN HYDROCHLORIDE
     Indication: DIABETES MELLITUS
     Dosage: 1 DF, BID
     Route: 048
  3. ROSUVASTATIN [Concomitant]
     Active Substance: ROSUVASTATIN
     Indication: HYPERLIPIDAEMIA
     Dosage: 10 MG, QD
     Route: 048
     Dates: start: 2008, end: 201505
  4. IMATINIB [Suspect]
     Active Substance: IMATINIB
     Indication: CHRONIC MYELOID LEUKAEMIA
     Dosage: 600 MG, QD
     Route: 065
     Dates: start: 20130402, end: 20130424
  5. IMATINIB [Suspect]
     Active Substance: IMATINIB
     Dosage: 400 MG, QD
     Route: 048
     Dates: start: 20130424, end: 20130506

REACTIONS (12)
  - Peripheral coldness [Unknown]
  - Paraparesis [Recovered/Resolved with Sequelae]
  - Pyrexia [Unknown]
  - Myalgia [Unknown]
  - Paraparesis [Recovered/Resolved with Sequelae]
  - Gait disturbance [Unknown]
  - Gastroenteritis viral [Unknown]
  - Diarrhoea [Unknown]
  - Vomiting [Unknown]
  - Hypotonia [Unknown]
  - Muscular weakness [Recovering/Resolving]
  - Hypoaesthesia [Unknown]

NARRATIVE: CASE EVENT DATE: 20130402
